FAERS Safety Report 7020530-6 (Version None)
Quarter: 2010Q3

REPORT INFORMATION
  Report Type: 
  Country: None (occurrence: None)
  Receive Date: 20100929
  Receipt Date: 20100920
  Transmission Date: 20110219
  Serious: Yes (Other)
  Sender: FDA-Public Use
  Company Number: CN-ASTRAZENECA-2010SE44179

PATIENT
  Age: 68 Year
  Sex: Female

DRUGS (1)
  1. FELODIPINE [Suspect]
     Indication: HYPERTENSION
     Route: 048

REACTIONS (1)
  - GASTRIC HAEMORRHAGE [None]
